FAERS Safety Report 25258844 (Version 1)
Quarter: 2025Q2

REPORT INFORMATION
  Report Type: Spontaneous
  Country: SE (occurrence: SE)
  Receive Date: 20250501
  Receipt Date: 20250501
  Transmission Date: 20250716
  Serious: Yes (Hospitalization, Disabling)
  Sender: MYLAN
  Company Number: None

PATIENT
  Age: 50 Year
  Sex: Female
  Weight: 120 kg

DRUGS (4)
  1. SERTRALINE HYDROCHLORIDE [Suspect]
     Active Substance: SERTRALINE HYDROCHLORIDE
     Indication: Anxiety
     Dosage: 150 MILLIGRAM, QD, (3 TABLETS DAILY, FILM-COATED TABLET)
     Dates: start: 20230817, end: 20240401
  2. SERTRALINE HYDROCHLORIDE [Suspect]
     Active Substance: SERTRALINE HYDROCHLORIDE
     Dosage: 150 MILLIGRAM, QD, (3 TABLETS DAILY, FILM-COATED TABLET)
     Route: 065
     Dates: start: 20230817, end: 20240401
  3. SERTRALINE HYDROCHLORIDE [Suspect]
     Active Substance: SERTRALINE HYDROCHLORIDE
     Dosage: 150 MILLIGRAM, QD, (3 TABLETS DAILY, FILM-COATED TABLET)
     Route: 065
     Dates: start: 20230817, end: 20240401
  4. SERTRALINE HYDROCHLORIDE [Suspect]
     Active Substance: SERTRALINE HYDROCHLORIDE
     Dosage: 150 MILLIGRAM, QD, (3 TABLETS DAILY, FILM-COATED TABLET)
     Dates: start: 20230817, end: 20240401

REACTIONS (2)
  - Muscular weakness [Recovering/Resolving]
  - Multiple acyl-coenzyme A dehydrogenase deficiency [Recovered/Resolved]

NARRATIVE: CASE EVENT DATE: 20240301
